FAERS Safety Report 23813198 (Version 1)
Quarter: 2024Q2

REPORT INFORMATION
  Report Type: Spontaneous
  Country: US (occurrence: US)
  Receive Date: 20240503
  Receipt Date: 20240503
  Transmission Date: 20240716
  Serious: Yes (Hospitalization)
  Sender: FDA-Public Use
  Company Number: US-BRISTOL-MYERS SQUIBB COMPANY-2024-060765

PATIENT
  Age: 72 Year
  Sex: Female

DRUGS (2)
  1. NULOJIX [Suspect]
     Active Substance: BELATACEPT
     Indication: Renal transplant
     Dosage: DOSE : 800MG;     FREQ : DAY 1, 5, END OF WEEK 2 AND END OF WEEK 4
     Route: 042
     Dates: start: 20240209
  2. NULOJIX [Suspect]
     Active Substance: BELATACEPT
     Indication: Nephropathy

REACTIONS (1)
  - Hospitalisation [Unknown]
